FAERS Safety Report 20206679 (Version 8)
Quarter: 2023Q2

REPORT INFORMATION
  Report Type: Spontaneous
  Country: CA (occurrence: CA)
  Receive Date: 20211220
  Receipt Date: 20230506
  Transmission Date: 20230721
  Serious: Yes (Other)
  Sender: FDA-Public Use
  Company Number: CA-CELLTRION INC.-2021CA017475

PATIENT

DRUGS (10)
  1. INFLECTRA [Suspect]
     Active Substance: INFLIXIMAB-DYYB
     Indication: Crohn^s disease
     Dosage: 300 MG (300 MG, 0, 2, 6 THEN EVERY 8 WEEKS)
     Route: 042
     Dates: start: 20211111, end: 20220329
  2. INFLECTRA [Suspect]
     Active Substance: INFLIXIMAB-DYYB
     Dosage: 300 MG (300 MG, 0, 2, 6 THEN EVERY 8 WEEKS)
     Route: 042
     Dates: start: 20211118
  3. INFLECTRA [Suspect]
     Active Substance: INFLIXIMAB-DYYB
     Dosage: 300 MG (300 MG, 0, 2, 6 THEN EVERY 8 WEEKS)
     Route: 042
     Dates: start: 20211209
  4. INFLECTRA [Suspect]
     Active Substance: INFLIXIMAB-DYYB
     Dosage: 300 MG (300 MG, 0, 2, 6 THEN EVERY 8 WEEKS)
     Route: 042
     Dates: start: 20220203
  5. INFLECTRA [Suspect]
     Active Substance: INFLIXIMAB-DYYB
     Dosage: 300 MG (300 MG, 0, 2, 6 THEN EVERY 8 WEEKS)
     Route: 042
     Dates: start: 20220329
  6. INFLECTRA [Suspect]
     Active Substance: INFLIXIMAB-DYYB
     Dosage: 400 MG, EVERY 8 WEEKS
     Route: 042
     Dates: start: 20220526
  7. INFLECTRA [Suspect]
     Active Substance: INFLIXIMAB-DYYB
     Dosage: 300 MG  0, 2, 6 THEN EVERY 8 WEEKS
     Route: 042
     Dates: start: 20220912
  8. INFLECTRA [Suspect]
     Active Substance: INFLIXIMAB-DYYB
     Dosage: 300 MG  0, 2, 6 THEN EVERY 8 WEEKS
     Route: 042
     Dates: start: 20221107
  9. INFLECTRA [Suspect]
     Active Substance: INFLIXIMAB-DYYB
     Dosage: 400 MG, EVERY 8 WEEKS
     Route: 042
     Dates: start: 20230103
  10. INFLECTRA [Suspect]
     Active Substance: INFLIXIMAB-DYYB
     Dosage: 400 MG, AFTER 16 WEEKS (PRESCRIBED INFUSIONS ARE EVERY 8 WEEKS)
     Route: 042
     Dates: start: 20230426

REACTIONS (6)
  - Weight increased [Not Recovered/Not Resolved]
  - Condition aggravated [Unknown]
  - Off label use [Unknown]
  - Off label use [Unknown]
  - Pruritus [Unknown]
  - COVID-19 [Not Recovered/Not Resolved]

NARRATIVE: CASE EVENT DATE: 20211118
